FAERS Safety Report 7610999-8 (Version None)
Quarter: 2011Q3

REPORT INFORMATION
  Report Type: 
  Country: None (occurrence: None)
  Receive Date: 20110707
  Receipt Date: 20110622
  Transmission Date: 20111222
  Serious: Yes (Hospitalization)
  Sender: FDA-Public Use
  Company Number: ENTC2011-0215

PATIENT
  Age: 80 Year
  Sex: Male

DRUGS (5)
  1. SPIRONOLACTONE [Concomitant]
  2. METFORMIN HCL [Concomitant]
  3. ENALAPRIL MALEATE [Concomitant]
  4. STALEVO 100 [Suspect]
     Indication: PARKINSON'S DISEASE
     Dosage: STRENGTH 50 MG; 50 MG FOUR TABLETS DAILY ORAL ; 100 MG FOUR TABLETS DAILY ORAL
     Route: 048
     Dates: start: 20110301
  5. FUROSEMIDE [Concomitant]

REACTIONS (2)
  - PULMONARY OEDEMA [None]
  - CARDIAC FAILURE [None]
